FAERS Safety Report 6882493-3 (Version None)
Quarter: 2010Q3

REPORT INFORMATION
  Report Type: 
  Country: None (occurrence: None)
  Receive Date: 20100727
  Receipt Date: 20100719
  Transmission Date: 20110219
  Serious: Yes (Hospitalization, Other)
  Sender: FDA-Public Use
  Company Number: CN-ASTRAZENECA-2010SE29796

PATIENT
  Age: 930 Month
  Sex: Female
  Weight: 55 kg

DRUGS (5)
  1. IRESSA [Suspect]
     Indication: LUNG CANCER METASTATIC
     Route: 048
     Dates: start: 20100601, end: 20100618
  2. DURAGESIC-100 [Concomitant]
     Indication: PAIN
  3. NEXIUM [Concomitant]
     Indication: PROPHYLAXIS AGAINST GASTROINTESTINAL ULCER
  4. LOVENOX [Concomitant]
     Indication: THROMBOSIS PROPHYLAXIS
  5. PARACETAMOL [Concomitant]
     Indication: PAIN

REACTIONS (3)
  - CONFUSIONAL STATE [None]
  - DIARRHOEA [None]
  - PSEUDODEMENTIA [None]
